FAERS Safety Report 10396371 (Version 1)
Quarter: 2014Q1

REPORT INFORMATION
  Report Type: Spontaneous
  Country: US (occurrence: None)
  Receive Date: 20130815
  Receipt Date: 20130815
  Transmission Date: 20141002
  Serious: Yes (Other)
  Sender: FDA-Public Use
  Company Number: ADR-2013-00995

PATIENT
  Age: 65 Year
  Sex: Female

DRUGS (3)
  1. BACLOFEN INTRATHECAL [Suspect]
     Indication: SPINAL PAIN
  2. MORPHINE [Concomitant]
  3. BUPIVACAINE (INTRATHECAL) 30 MG/ML [Concomitant]

REACTIONS (1)
  - Wound infection [None]
